FAERS Safety Report 21208949 (Version 3)
Quarter: 2022Q3

REPORT INFORMATION
  Report Type: Spontaneous
  Country: US (occurrence: US)
  Receive Date: 20220812
  Receipt Date: 20220914
  Transmission Date: 20221027
  Serious: Yes (Hospitalization)
  Sender: FDA-Public Use
  Company Number: US-UNITED THERAPEUTICS-UNT-2022-017420

PATIENT
  Sex: Female

DRUGS (5)
  1. REMODULIN [Suspect]
     Active Substance: TREPROSTINIL
     Indication: Pulmonary arterial hypertension
     Dosage: UNK, CONTINUING
     Route: 058
     Dates: start: 20220721
  2. REMODULIN [Suspect]
     Active Substance: TREPROSTINIL
     Dosage: 0.01324 ?G/KG, CONTINUING
     Route: 058
     Dates: start: 2022, end: 2022
  3. REMODULIN [Suspect]
     Active Substance: TREPROSTINIL
     Dosage: 0.013 ?G/KG, CONTINUING
     Route: 058
     Dates: start: 2022
  4. REMODULIN [Suspect]
     Active Substance: TREPROSTINIL
     Dosage: 0.01426 ?G/KG, CONTINUING
     Route: 058
     Dates: start: 2022
  5. REMODULIN [Suspect]
     Active Substance: TREPROSTINIL
     Dosage: 0.01834 ?G/KG, CONTINUING
     Route: 058
     Dates: start: 2022

REACTIONS (6)
  - Nausea [Unknown]
  - Device infusion issue [Unknown]
  - Device power source issue [Unknown]
  - Device failure [Unknown]
  - Device use error [Unknown]
  - Device power source issue [Recovered/Resolved]

NARRATIVE: CASE EVENT DATE: 20220101
